FAERS Safety Report 5870551-1 (Version None)
Quarter: 2008Q3

REPORT INFORMATION
  Report Type: 
  Country: None (occurrence: None)
  Receive Date: 20080828
  Receipt Date: 20080310
  Transmission Date: 20090109
  Serious: Yes (Hospitalization)
  Sender: FDA-Public Use
  Company Number: 2008-00192FE

PATIENT
  Age: 27 Year
  Sex: Female

DRUGS (3)
  1. CHORIONIC GONADTROPIN [Suspect]
     Indication: INFERTILITY
     Dosage: 5000 IU
  2. UROFOLLITROPIN [Suspect]
     Indication: INFERTILITY
     Dosage: 75 UI
  3. GONADOTROPIN RELEASING HORMONE (GNRH) [Suspect]
     Indication: INFERTILITY
     Dosage: 3 MG

REACTIONS (10)
  - ABORTION SPONTANEOUS [None]
  - ACUTE RESPIRATORY FAILURE [None]
  - ASCITES [None]
  - BLOOD PRESSURE SYSTOLIC INSPIRATORY DECREASED [None]
  - CARDIAC DISORDER [None]
  - CARDIAC TAMPONADE [None]
  - DRUG EXPOSURE DURING PREGNANCY [None]
  - HEART RATE INCREASED [None]
  - OVARIAN HYPERSTIMULATION SYNDROME [None]
  - PLEURAL EFFUSION [None]
